FAERS Safety Report 13656758 (Version 1)
Quarter: 2017Q2

REPORT INFORMATION
  Report Type: Spontaneous
  Country: AU (occurrence: AU)
  Receive Date: 20170615
  Receipt Date: 20170615
  Transmission Date: 20170830
  Serious: No
  Sender: FDA-Public Use
  Company Number: AU-ALLERGAN-1654419US

PATIENT
  Age: 6 Year
  Sex: Female

DRUGS (2)
  1. OXYTROL [Suspect]
     Active Substance: OXYBUTYNIN
     Indication: HYPERTONIC BLADDER
     Dosage: UNK
     Dates: start: 20160413
  2. OXYTROL [Suspect]
     Active Substance: OXYBUTYNIN
     Dosage: UNK
     Dates: start: 20160417

REACTIONS (1)
  - Adverse event [Unknown]
